FAERS Safety Report 11832264 (Version 1)
Quarter: 2015Q4

REPORT INFORMATION
  Report Type: Spontaneous
  Country: US (occurrence: US)
  Receive Date: 20151214
  Receipt Date: 20151214
  Transmission Date: 20160305
  Serious: Yes (Hospitalization)
  Sender: FDA-Public Use
  Company Number: US-BAYER-2015-483779

PATIENT
  Sex: Female

DRUGS (1)
  1. ALKA-SELTZER PLUS COLD FORMULA [Suspect]
     Active Substance: ASPIRIN\CHLORPHENIRAMINE MALEATE\PHENYLEPHRINE BITARTRATE
     Dosage: UNK
     Dates: start: 20151110

REACTIONS (4)
  - Dizziness [None]
  - Vomiting [None]
  - Abdominal pain upper [None]
  - Malaise [None]

NARRATIVE: CASE EVENT DATE: 20151110
